FAERS Safety Report 23650111 (Version 2)
Quarter: 2024Q1

REPORT INFORMATION
  Report Type: Spontaneous
  Country: MY (occurrence: MY)
  Receive Date: 20240319
  Receipt Date: 20240321
  Transmission Date: 20240410
  Serious: Yes (Death)
  Sender: FDA-Public Use
  Company Number: MY-BoehringerIngelheim-2024-BI-015411

PATIENT
  Age: 35 Year
  Sex: Male

DRUGS (2)
  1. METALYSE [Suspect]
     Active Substance: TENECTEPLASE
     Indication: Pulmonary embolism
     Route: 065
     Dates: start: 20240313
  2. NEXIUM [Concomitant]
     Active Substance: ESOMEPRAZOLE MAGNESIUM
     Indication: Product used for unknown indication

REACTIONS (3)
  - Carotid artery thrombosis [Fatal]
  - Off label use [Fatal]
  - Product expiration date issue [Unknown]
